FAERS Safety Report 6628485-0 (Version None)
Quarter: 2010Q1

REPORT INFORMATION
  Report Type: 
  Country: None (occurrence: None)
  Receive Date: 20100311
  Receipt Date: 20100303
  Transmission Date: 20100710
  Serious: Yes (Hospitalization, Other)
  Sender: FDA-Public Use
  Company Number: DE-JNJFOC-20091202257

PATIENT
  Age: 16 Year
  Sex: Male

DRUGS (4)
  1. TOPAMAX [Suspect]
     Indication: EPILEPSY
     Route: 048
  2. TOPAMAX [Suspect]
     Route: 048
  3. TOPAMAX [Suspect]
     Route: 048
  4. KEPPRA [Suspect]
     Indication: EPILEPSY
     Route: 065
     Dates: start: 20080901

REACTIONS (3)
  - HEARING IMPAIRED [None]
  - MENIERE'S DISEASE [None]
  - SUDDEN HEARING LOSS [None]
